FAERS Safety Report 10170809 (Version 2)
Quarter: 2014Q2

REPORT INFORMATION
  Report Type: Spontaneous
  Country: AT (occurrence: AT)
  Receive Date: 20140514
  Receipt Date: 20140523
  Transmission Date: 20141212
  Serious: Yes (Other)
  Sender: FDA-Public Use
  Company Number: AT-JNJFOC-20140505530

PATIENT
  Age: 54 Year
  Sex: Female

DRUGS (1)
  1. REMICADE [Suspect]
     Indication: ANKYLOSING SPONDYLITIS
     Dosage: APPROXIMATE TOTAL NUMBER INFUSIONS, PATIENT RECEIVED WAS 60 INFUSIONS
     Route: 042
     Dates: end: 20140401

REACTIONS (1)
  - Amyotrophic lateral sclerosis [Not Recovered/Not Resolved]
